FAERS Safety Report 4693090-2 (Version None)
Quarter: 2005Q2

REPORT INFORMATION
  Report Type: 
  Country: None (occurrence: None)
  Receive Date: 20050617
  Receipt Date: 20050524
  Transmission Date: 20051028
  Serious: Yes (Other)
  Sender: FDA-Public Use
  Company Number: PHHO2005CA08438

PATIENT
  Sex: Female

DRUGS (1)
  1. ZELNORM [Suspect]
     Route: 048

REACTIONS (3)
  - ARTHRALGIA [None]
  - FAECAL INCONTINENCE [None]
  - IRRITABLE BOWEL SYNDROME [None]
